FAERS Safety Report 11654493 (Version 1)
Quarter: 2015Q4

REPORT INFORMATION
  Report Type: Report from Study
  Country: ZA (occurrence: ZA)
  Receive Date: 20151023
  Receipt Date: 20151023
  Transmission Date: 20160304
  Serious: Yes (Life-Threatening, Hospitalization)
  Sender: FDA-Public Use
  Company Number: ZA-ROCHE-1648532

PATIENT
  Age: 42 Year
  Sex: Female
  Weight: 81.5 kg

DRUGS (20)
  1. VINCRISTINE [Suspect]
     Active Substance: VINCRISTINE
     Indication: NON-HODGKIN^S LYMPHOMA
     Route: 042
     Dates: start: 20150318
  2. PREDNISONE. [Suspect]
     Active Substance: PREDNISONE
     Indication: NON-HODGKIN^S LYMPHOMA
     Route: 048
     Dates: start: 20150318
  3. PREDNISONE. [Suspect]
     Active Substance: PREDNISONE
     Dosage: X 7 DAYS
     Route: 048
  4. PANADO [Suspect]
     Active Substance: ACETAMINOPHEN
     Indication: NON-HODGKIN^S LYMPHOMA
     Dosage: 2 TABLETS 6 HOURLY
     Route: 048
     Dates: start: 20150630, end: 20150630
  5. AUGMENTIN [Concomitant]
     Active Substance: AMOXICILLIN\CLAVULANATE POTASSIUM
     Dosage: 625MG THREE TIMES A DAY FOR 7 DAYS
     Route: 048
     Dates: start: 20150630, end: 20150706
  6. CYCLOPHOSPHAMIDE. [Suspect]
     Active Substance: CYCLOPHOSPHAMIDE
     Dosage: X 1 DOSE
     Route: 042
     Dates: start: 20150630, end: 20150630
  7. VINCRISTINE [Suspect]
     Active Substance: VINCRISTINE
     Dosage: X 1 DOSE
     Route: 042
     Dates: start: 20150630, end: 20150630
  8. ADRIAMYCIN [Suspect]
     Active Substance: DOXORUBICIN HYDROCHLORIDE
     Indication: NON-HODGKIN^S LYMPHOMA
     Route: 042
     Dates: start: 20150318
  9. ETOPOSIDE. [Suspect]
     Active Substance: ETOPOSIDE
     Indication: NON-HODGKIN^S LYMPHOMA
     Route: 042
     Dates: start: 20150318
  10. ALLOPURINOL. [Concomitant]
     Active Substance: ALLOPURINOL
     Route: 048
     Dates: start: 20150630
  11. RITUXIMAB [Suspect]
     Active Substance: RITUXIMAB
     Indication: NON-HODGKIN^S LYMPHOMA
     Route: 042
     Dates: start: 20150318
  12. ADRIAMYCIN [Suspect]
     Active Substance: DOXORUBICIN HYDROCHLORIDE
     Dosage: X 1 DOSE
     Route: 042
     Dates: start: 20150630, end: 20150630
  13. SPECTRAPAIN [Concomitant]
     Dosage: 2 TABLETS WHEN NECESAARY
     Route: 048
     Dates: start: 20150630
  14. CYCLOPHOSPHAMIDE. [Suspect]
     Active Substance: CYCLOPHOSPHAMIDE
     Indication: NON-HODGKIN^S LYMPHOMA
     Route: 042
     Dates: start: 20150318
  15. ZOFRAN [Suspect]
     Active Substance: ONDANSETRON HYDROCHLORIDE
     Indication: NON-HODGKIN^S LYMPHOMA
     Route: 042
     Dates: start: 20150630, end: 20150630
  16. RITUXIMAB [Suspect]
     Active Substance: RITUXIMAB
     Dosage: X 1 DOSE
     Route: 042
     Dates: start: 20150630, end: 20150630
  17. LANZOR [Concomitant]
     Active Substance: LANSOPRAZOLE
     Route: 048
     Dates: start: 20150630
  18. ETOPOSIDE. [Suspect]
     Active Substance: ETOPOSIDE
     Dosage: X 1 DOSE
     Route: 042
     Dates: start: 20150630, end: 20150630
  19. SOLU-CORTEF [Suspect]
     Active Substance: HYDROCORTISONE SODIUM SUCCINATE
     Indication: NON-HODGKIN^S LYMPHOMA
     Route: 042
     Dates: start: 20150630, end: 20150630
  20. PHENERGAN [Suspect]
     Active Substance: PROMETHAZINE HYDROCHLORIDE
     Indication: NON-HODGKIN^S LYMPHOMA
     Dosage: 25MG 3 TIMES A DAY
     Route: 048
     Dates: start: 20150630, end: 20150630

REACTIONS (9)
  - Dizziness [Unknown]
  - Chest pain [Unknown]
  - Fatigue [Unknown]
  - Haemorrhage [Unknown]
  - Respiratory distress [Unknown]
  - Pyrexia [Unknown]
  - Pneumonia [Recovering/Resolving]
  - Pulmonary embolism [Recovering/Resolving]
  - Asthenia [Unknown]

NARRATIVE: CASE EVENT DATE: 20150707
